FAERS Safety Report 24388678 (Version 1)
Quarter: 2024Q4

REPORT INFORMATION
  Report Type: Spontaneous
  Country: CA (occurrence: CA)
  Receive Date: 20241002
  Receipt Date: 20241002
  Transmission Date: 20250114
  Serious: Yes (Other)
  Sender: EISAI
  Company Number: CA-Eisai-EC-2024-175198

PATIENT
  Age: 69 Year
  Sex: Female
  Weight: 68.49 kg

DRUGS (2)
  1. DAYVIGO [Suspect]
     Active Substance: LEMBOREXANT
     Indication: Sleep disorder therapy
     Route: 048
  2. MELATONIN [Concomitant]
     Active Substance: MELATONIN
     Indication: Product used for unknown indication
     Dosage: DOSE UNKNOWN

REACTIONS (5)
  - Paralysis [Recovered/Resolved]
  - Feeling cold [Recovered/Resolved]
  - Hallucination, visual [Recovered/Resolved]
  - Speech disorder [Recovered/Resolved]
  - Tremor [Recovered/Resolved]
